FAERS Safety Report 19083077 (Version 1)
Quarter: 2021Q2

REPORT INFORMATION
  Report Type: Spontaneous
  Country: GB (occurrence: GB)
  Receive Date: 20210401
  Receipt Date: 20210401
  Transmission Date: 20210717
  Serious: Yes (Hospitalization, Other)
  Sender: FDA-Public Use
  Company Number: GB-UCBSA-2021009543

PATIENT
  Age: 6 Year
  Sex: Male
  Weight: 23 kg

DRUGS (3)
  1. KEPPRA [Suspect]
     Active Substance: LEVETIRACETAM
     Dosage: 1000 MILLIGRAM, 2X/DAY (BID)
     Dates: start: 2021, end: 2021
  2. KEPPRA [Suspect]
     Active Substance: LEVETIRACETAM
     Dosage: 600 MILLIGRAM, 2X/DAY (BID)
     Dates: start: 2021
  3. KEPPRA [Suspect]
     Active Substance: LEVETIRACETAM
     Indication: EPILEPSY
     Dosage: 1000 MILLIGRAM, ONCE DAILY (QD)
     Dates: start: 20210115, end: 2021

REACTIONS (14)
  - Headache [Recovering/Resolving]
  - Deafness [Unknown]
  - Anger [Recovering/Resolving]
  - Disturbance in attention [Not Recovered/Not Resolved]
  - Abdominal pain upper [Recovering/Resolving]
  - Product dispensing error [Unknown]
  - Aggression [Recovering/Resolving]
  - Ear pain [Recovering/Resolving]
  - Depressed mood [Recovering/Resolving]
  - Cough [Recovering/Resolving]
  - Emotional disorder [Recovering/Resolving]
  - Lethargy [Recovering/Resolving]
  - Overdose [Unknown]
  - Product use issue [Unknown]

NARRATIVE: CASE EVENT DATE: 20210115
